FAERS Safety Report 8304452-6 (Version None)
Quarter: 2012Q2

REPORT INFORMATION
  Report Type: 
  Country: None (occurrence: None)
  Receive Date: 20120423
  Receipt Date: 20120416
  Transmission Date: 20120825
  Serious: Yes (Hospitalization)
  Sender: FDA-Public Use
  Company Number: US-PFIZER INC-2012084437

PATIENT
  Sex: Female

DRUGS (12)
  1. CALCITRIOL [Concomitant]
     Dosage: UNK
     Dates: start: 20111222
  2. TYLENOL PM [Suspect]
     Dosage: UNK
     Dates: start: 20110601
  3. SYNTHROID [Concomitant]
     Dosage: UNK
     Dates: start: 20060101
  4. VYTORIN [Concomitant]
     Dosage: UNK
     Dates: start: 20080101
  5. ZANTAC [Concomitant]
     Dosage: UNK
     Dates: start: 20120128
  6. AXITINIB [Suspect]
     Indication: RENAL CELL CARCINOMA
     Dosage: 5 MG, 2X/DAY
     Route: 048
     Dates: start: 20120303, end: 20120313
  7. LOVENOX [Concomitant]
     Dosage: UNK
     Dates: start: 20111220
  8. MDX-1106 [Suspect]
     Indication: RENAL CELL CARCINOMA
     Dosage: 556 MG, DAILY
     Route: 042
     Dates: start: 20120110, end: 20120131
  9. ALLOPURINOL [Concomitant]
     Dosage: UNK
     Dates: start: 20111228
  10. CALCIUM CARBONATE [Concomitant]
     Dosage: UNK
     Dates: start: 20111222
  11. AVASTIN [Suspect]
     Indication: RENAL CELL CARCINOMA
     Dosage: 10 MG/KG, UNK
     Dates: start: 20120322
  12. OMEPRAZOLE [Concomitant]
     Dosage: UNK
     Dates: start: 20120111

REACTIONS (8)
  - ALANINE AMINOTRANSFERASE INCREASED [None]
  - BLOOD ALKALINE PHOSPHATASE INCREASED [None]
  - TOXICITY TO VARIOUS AGENTS [None]
  - RENAL FAILURE ACUTE [None]
  - HYPONATRAEMIA [None]
  - BLOOD BILIRUBIN INCREASED [None]
  - ASPARTATE AMINOTRANSFERASE INCREASED [None]
  - BACK PAIN [None]
